FAERS Safety Report 17694717 (Version 1)
Quarter: 2020Q2

REPORT INFORMATION
  Report Type: Spontaneous
  Country: FR (occurrence: FR)
  Receive Date: 20200422
  Receipt Date: 20200422
  Transmission Date: 20200714
  Serious: Yes (Life-Threatening)
  Sender: FDA-Public Use
  Company Number: FR-BRISTOL-MYERS SQUIBB COMPANY-BMS-2020-031933

PATIENT
  Age: 71 Year
  Sex: Female
  Weight: 85 kg

DRUGS (6)
  1. ENTRESTO [Suspect]
     Active Substance: SACUBITRIL\VALSARTAN
     Indication: INFLUENZA LIKE ILLNESS
     Dosage: 2 DOSAGE FORM
     Route: 048
     Dates: end: 20200319
  2. COUMADINE [Suspect]
     Active Substance: WARFARIN SODIUM
     Indication: CARDIAC VALVE DISEASE
     Dosage: 6 MILLIGRAM
     Route: 048
     Dates: end: 20200319
  3. SOLUPRED [PREDNISOLONE METASULFOBENZOATE SODIUM] [Interacting]
     Active Substance: PREDNISOLONE SODIUM METAZOATE
     Indication: OBLITERATIVE BRONCHIOLITIS
     Dosage: 10 MILLIGRAM
     Route: 048
  4. CORTANCYL [Interacting]
     Active Substance: PREDNISONE
     Indication: OBLITERATIVE BRONCHIOLITIS
     Dosage: 2 MILLIGRAM, QD
     Route: 048
  5. AUGMENTIN [Interacting]
     Active Substance: AMOXICILLIN\CLAVULANATE POTASSIUM
     Indication: CORONAVIRUS INFECTION
     Dosage: UNK
     Route: 048
     Dates: start: 20200313, end: 20200319
  6. KALETRA [Interacting]
     Active Substance: LOPINAVIR\RITONAVIR
     Indication: HYPERTENSION
     Dosage: UNK
     Route: 048
     Dates: start: 20200317, end: 20200330

REACTIONS (3)
  - Coronavirus infection [Recovering/Resolving]
  - Drug interaction [Unknown]
  - International normalised ratio increased [Recovered/Resolved]

NARRATIVE: CASE EVENT DATE: 20200313
